FAERS Safety Report 24732900 (Version 1)
Quarter: 2024Q4

REPORT INFORMATION
  Report Type: Spontaneous
  Country: DE (occurrence: DE)
  Receive Date: 20241213
  Receipt Date: 20241213
  Transmission Date: 20250114
  Serious: Yes (Congenital Anomaly)
  Sender: BIOMARIN
  Company Number: DE-BIOMARINAP-DE-2024-162485

PATIENT

DRUGS (1)
  1. NAGLAZYME [Suspect]
     Active Substance: GALSULFASE
     Indication: Mucopolysaccharidosis VI
     Dosage: 20 MILLIGRAM, QW
     Route: 042

REACTIONS (1)
  - Migraine [Recovered/Resolved]
